FAERS Safety Report 6583500-8 (Version None)
Quarter: 2010Q1

REPORT INFORMATION
  Report Type: 
  Country: None (occurrence: None)
  Receive Date: 20100216
  Receipt Date: 20100204
  Transmission Date: 20100710
  Serious: Yes (Other)
  Sender: FDA-Public Use
  Company Number: PHHY2010NO07945

PATIENT

DRUGS (1)
  1. ACLASTA [Suspect]

REACTIONS (1)
  - OSTEONECROSIS [None]
